FAERS Safety Report 4751217-8 (Version None)
Quarter: 2005Q3

REPORT INFORMATION
  Report Type: 
  Country: None (occurrence: None)
  Receive Date: 20050823
  Receipt Date: 20050823
  Transmission Date: 20060218
  Serious: No
  Sender: FDA-Public Use
  Company Number: None

PATIENT
  Age: 64 Year
  Sex: Female
  Weight: 56.246 kg

DRUGS (1)
  1. BAYCOL [Suspect]
     Indication: BLOOD CHOLESTEROL INCREASED
     Dosage: 1 TABLET PER DAY

REACTIONS (5)
  - ANKLE FRACTURE [None]
  - ASTHENIA [None]
  - FALL [None]
  - FATIGUE [None]
  - PAIN IN EXTREMITY [None]
